FAERS Safety Report 23684848 (Version 1)
Quarter: 2024Q1

REPORT INFORMATION
  Report Type: Spontaneous
  Country: BG (occurrence: BG)
  Receive Date: 20240328
  Receipt Date: 20240328
  Transmission Date: 20240409
  Serious: Yes (Other)
  Sender: FDA-Public Use
  Company Number: BG-002147023-NVSC2024BG058022

PATIENT

DRUGS (1)
  1. RUXOLITINIB [Suspect]
     Active Substance: RUXOLITINIB
     Indication: Myelofibrosis
     Dosage: 20 MG, BID (2 X 20 MG)
     Route: 048
     Dates: start: 20230403

REACTIONS (12)
  - Anaemia [Unknown]
  - Gastrointestinal haemorrhage [Unknown]
  - Contusion [Unknown]
  - Dizziness [Unknown]
  - Headache [Unknown]
  - Hypercholesterolaemia [Unknown]
  - Infection [Unknown]
  - Haemorrhage [Unknown]
  - Haemorrhage intracranial [Unknown]
  - Neutropenia [Unknown]
  - Thrombocytopenia [Unknown]
  - Weight increased [Unknown]
